FAERS Safety Report 17564459 (Version 2)
Quarter: 2020Q4

REPORT INFORMATION
  Report Type: Report from Study
  Country: US (occurrence: US)
  Receive Date: 20200320
  Receipt Date: 20201110
  Transmission Date: 20210113
  Serious: Yes (Other)
  Sender: FDA-Public Use
  Company Number: NVSC2020US078562

PATIENT
  Age: 25 Year
  Sex: Female

DRUGS (4)
  1. KYMRIAH [Suspect]
     Active Substance: TISAGENLECLEUCEL
     Dosage: UNK
     Route: 041
     Dates: start: 20180926
  2. CYCLOPHOSPHAMIDE. [Concomitant]
     Active Substance: CYCLOPHOSPHAMIDE
     Indication: PRODUCT USED FOR UNKNOWN INDICATION
     Dosage: UNK
     Route: 065
  3. KYMRIAH [Suspect]
     Active Substance: TISAGENLECLEUCEL
     Indication: B-CELL TYPE ACUTE LEUKAEMIA
     Dosage: UNK
     Route: 041
     Dates: start: 20171213
  4. FLUDARABINE [Concomitant]
     Active Substance: FLUDARABINE PHOSPHATE
     Indication: PRODUCT USED FOR UNKNOWN INDICATION
     Dosage: UNK
     Route: 065

REACTIONS (9)
  - Haemoglobin decreased [Unknown]
  - Clostridium difficile colitis [Unknown]
  - Hypogammaglobulinaemia [Unknown]
  - Cytokine release syndrome [Recovered/Resolved]
  - Off label use [Unknown]
  - Neutrophil count decreased [Recovered/Resolved]
  - Pyrexia [Unknown]
  - Platelet count decreased [Unknown]
  - Lymphocyte count decreased [Unknown]
